APPROVED DRUG PRODUCT: DALFAMPRIDINE
Active Ingredient: DALFAMPRIDINE
Strength: 10MG
Dosage Form/Route: TABLET, EXTENDED RELEASE;ORAL
Application: A206863 | Product #001 | TE Code: AB
Applicant: ACCORD HEALTHCARE INC
Approved: Jul 11, 2018 | RLD: No | RS: No | Type: RX